FAERS Safety Report 22243063 (Version 1)
Quarter: 2023Q2

REPORT INFORMATION
  Report Type: Spontaneous
  Country: CA (occurrence: CA)
  Receive Date: 20230424
  Receipt Date: 20230424
  Transmission Date: 20230722
  Serious: Yes (Other)
  Sender: FDA-Public Use
  Company Number: CA-NAPPMUNDI-GBR-2023-0106936

PATIENT
  Sex: Female

DRUGS (2)
  1. HYDROMORPHONE [Suspect]
     Active Substance: HYDROMORPHONE
     Indication: Product used for unknown indication
     Dosage: HYDROMORPH CONTIN 3MG + HYDROMORPH CONTIN 6MG (TO MAKE A TOTAL DOSE OF 9MG)
     Route: 065
  2. HYDROMORPHONE [Suspect]
     Active Substance: HYDROMORPHONE
     Indication: Product used for unknown indication
     Dosage: HYDROMORPH CONTIN 3MG + HYDROMORPH CONTIN 6MG (TO MAKE A TOTAL DOSE OF 9MG)
     Route: 065

REACTIONS (4)
  - Ileostomy [Unknown]
  - Product residue present [Unknown]
  - Product availability issue [Unknown]
  - Extra dose administered [Unknown]
